FAERS Safety Report 4800160-4 (Version None)
Quarter: 2005Q4

REPORT INFORMATION
  Report Type: 
  Country: None (occurrence: None)
  Receive Date: 20051017
  Receipt Date: 20051006
  Transmission Date: 20060501
  Serious: Yes (Death)
  Sender: FDA-Public Use
  Company Number: JP-JNJFOC-20051001325

PATIENT
  Age: 77 Year
  Sex: Male

DRUGS (10)
  1. TAVANIC [Suspect]
     Indication: PNEUMONIA
     Route: 042
     Dates: start: 20050605, end: 20050612
  2. CEPHALOZIN [Concomitant]
     Indication: PNEUMONIA
     Dates: start: 20050528, end: 20050530
  3. CLONT [Concomitant]
     Indication: PNEUMONIA
     Dates: start: 20050612
  4. CIPROBAY [Concomitant]
     Indication: PNEUMONIA
     Dates: start: 20050612
  5. LIQUAEMIN INJ [Concomitant]
     Indication: ANTICOAGULANT THERAPY
  6. PANTOZOL [Concomitant]
     Indication: GASTROINTESTINAL DISORDER THERAPY
     Dates: start: 20050528
  7. FLUIMUCIL [Concomitant]
     Indication: DRUG THERAPY
     Dates: start: 20050528
  8. MUCOSOLVAN [Concomitant]
     Indication: DRUG THERAPY
     Dates: start: 20050528
  9. EBRANTIL [Concomitant]
     Indication: HYPERTENSION
  10. ADALAT [Concomitant]
     Indication: HYPERTENSION

REACTIONS (1)
  - CARDIOPULMONARY FAILURE [None]
